FAERS Safety Report 5335047-4 (Version None)
Quarter: 2007Q2

REPORT INFORMATION
  Report Type: 
  Country: None (occurrence: None)
  Receive Date: 20070525
  Receipt Date: 20070523
  Transmission Date: 20071010
  Serious: Yes (Other)
  Sender: FDA-Public Use
  Company Number: A0652943A

PATIENT
  Age: 58 Year
  Sex: Male

DRUGS (2)
  1. AVANDIA [Suspect]
     Route: 048
     Dates: start: 19990101, end: 20070201
  2. METFORMIN HCL [Suspect]
     Route: 048

REACTIONS (3)
  - CARDIAC FAILURE [None]
  - CARDIOVASCULAR DISORDER [None]
  - CORONARY ARTERY BYPASS [None]
